FAERS Safety Report 7368173-9 (Version None)
Quarter: 2011Q1

REPORT INFORMATION
  Report Type: 
  Country: None (occurrence: None)
  Receive Date: 20110323
  Receipt Date: 20110318
  Transmission Date: 20110831
  Serious: Yes (Other)
  Sender: FDA-Public Use
  Company Number: US-PFIZER INC-2009313113

PATIENT
  Age: 60 Year
  Sex: Female

DRUGS (3)
  1. GEODON [Suspect]
     Dosage: UNK
     Dates: start: 20090601
  2. GEODON [Suspect]
     Dosage: 80 MG DAILY
     Dates: end: 20060401
  3. GEODON [Suspect]
     Dosage: 20 MG DAILY
     Dates: start: 20050401

REACTIONS (4)
  - TARDIVE DYSKINESIA [None]
  - WITHDRAWAL SYNDROME [None]
  - DYSKINESIA [None]
  - DYSPNOEA [None]
